FAERS Safety Report 26006515 (Version 1)
Quarter: 2025Q4

REPORT INFORMATION
  Report Type: Spontaneous
  Country: US (occurrence: US)
  Receive Date: 20251106
  Receipt Date: 20251106
  Transmission Date: 20260117
  Serious: Yes (Hospitalization)
  Sender: MYLAN
  Company Number: US-MYLANLABS-2025M1094190

PATIENT

DRUGS (20)
  1. PREDNISONE [Suspect]
     Active Substance: PREDNISONE
     Indication: Contrast media allergy
     Dosage: UNK
  2. PREDNISONE [Suspect]
     Active Substance: PREDNISONE
     Indication: Allergy prophylaxis
     Dosage: UNK
     Route: 065
  3. PREDNISONE [Suspect]
     Active Substance: PREDNISONE
     Dosage: UNK
     Route: 065
  4. PREDNISONE [Suspect]
     Active Substance: PREDNISONE
     Dosage: UNK
  5. IOHEXOL [Concomitant]
     Active Substance: IOHEXOL
     Indication: Imaging procedure
     Dosage: 350 MILLIGRAM
  6. IOHEXOL [Concomitant]
     Active Substance: IOHEXOL
     Dosage: 350 MILLIGRAM
     Route: 042
  7. IOHEXOL [Concomitant]
     Active Substance: IOHEXOL
     Dosage: 350 MILLIGRAM
     Route: 042
  8. IOHEXOL [Concomitant]
     Active Substance: IOHEXOL
     Dosage: 350 MILLIGRAM
  9. IODIXANOL [Concomitant]
     Active Substance: IODIXANOL
     Indication: Imaging procedure
     Dosage: UNK
  10. IODIXANOL [Concomitant]
     Active Substance: IODIXANOL
     Dosage: UNK
     Route: 065
  11. IODIXANOL [Concomitant]
     Active Substance: IODIXANOL
     Dosage: UNK
     Route: 065
  12. IODIXANOL [Concomitant]
     Active Substance: IODIXANOL
     Dosage: UNK
  13. DIPHENHYDRAMINE [Concomitant]
     Active Substance: DIPHENHYDRAMINE
     Indication: Contrast media allergy
     Dosage: 50 MILLIGRAM
  14. DIPHENHYDRAMINE [Concomitant]
     Active Substance: DIPHENHYDRAMINE
     Indication: Allergy prophylaxis
     Dosage: 50 MILLIGRAM
     Route: 042
  15. DIPHENHYDRAMINE [Concomitant]
     Active Substance: DIPHENHYDRAMINE
     Dosage: 50 MILLIGRAM
     Route: 042
  16. DIPHENHYDRAMINE [Concomitant]
     Active Substance: DIPHENHYDRAMINE
     Dosage: 50 MILLIGRAM
  17. ALBUTEROL [Concomitant]
     Active Substance: ALBUTEROL
     Indication: Contrast media allergy
     Dosage: UNK
  18. ALBUTEROL [Concomitant]
     Active Substance: ALBUTEROL
     Indication: Allergy prophylaxis
     Dosage: UNK
     Route: 065
  19. ALBUTEROL [Concomitant]
     Active Substance: ALBUTEROL
     Dosage: UNK
     Route: 065
  20. ALBUTEROL [Concomitant]
     Active Substance: ALBUTEROL
     Dosage: UNK

REACTIONS (1)
  - Drug ineffective [Unknown]
